FAERS Safety Report 4973854-8 (Version None)
Quarter: 2006Q2

REPORT INFORMATION
  Report Type: 
  Country: None (occurrence: None)
  Receive Date: 20060414
  Receipt Date: 20060117
  Transmission Date: 20061013
  Serious: Yes (Other)
  Sender: FDA-Public Use
  Company Number: NLWYE310118JAN06

PATIENT
  Sex: Female

DRUGS (3)
  1. ENBREL [Suspect]
     Indication: DRUG USE FOR UNKNOWN INDICATION
     Dosage: UNKNOWN
     Route: 058
     Dates: start: 20050801
  2. METHOTREXATE [Concomitant]
  3. BRUFEN [Concomitant]

REACTIONS (2)
  - FACIAL PALSY [None]
  - TOOTH DISORDER [None]
